FAERS Safety Report 5904148-1 (Version None)
Quarter: 2008Q4

REPORT INFORMATION
  Report Type: 
  Country: None (occurrence: None)
  Receive Date: 20081001
  Receipt Date: 20080919
  Transmission Date: 20090506
  Serious: Yes (Other)
  Sender: FDA-Public Use
  Company Number: US-RANBAXY-2008US-18052

PATIENT

DRUGS (2)
  1. CIPROFLOXACIN [Suspect]
     Indication: FRACTURE
     Dosage: UNK, UNK
  2. CIPROFLOXACIN [Suspect]
     Indication: INFLAMMATION

REACTIONS (4)
  - ABASIA [None]
  - DRUG INEFFECTIVE [None]
  - OEDEMA PERIPHERAL [None]
  - TENDON RUPTURE [None]
